FAERS Safety Report 25218095 (Version 1)
Quarter: 2025Q2

REPORT INFORMATION
  Report Type: Spontaneous
  Country: US (occurrence: US)
  Receive Date: 20250421
  Receipt Date: 20250421
  Transmission Date: 20250717
  Serious: No
  Sender: SUNOVION
  Company Number: US-SMPA-2025SPA003648AA

PATIENT

DRUGS (2)
  1. ORGOVYX [Suspect]
     Active Substance: RELUGOLIX
     Indication: Prostate cancer
     Route: 048
     Dates: start: 20250307
  2. ORGOVYX [Suspect]
     Active Substance: RELUGOLIX
     Route: 048

REACTIONS (2)
  - Micturition urgency [Unknown]
  - Device leakage [Unknown]
